FAERS Safety Report 21861846 (Version 1)
Quarter: 2023Q1

REPORT INFORMATION
  Report Type: Spontaneous
  Country: CH (occurrence: CH)
  Receive Date: 20230113
  Receipt Date: 20230113
  Transmission Date: 20230417
  Serious: Yes (Hospitalization)
  Sender: FDA-Public Use
  Company Number: None

PATIENT
  Age: 64 Year
  Sex: Male
  Weight: 78.6 kg

DRUGS (11)
  1. DEXAMETHASONE [Suspect]
     Active Substance: DEXAMETHASONE
     Indication: Mantle cell lymphoma stage IV
     Dosage: 40MG/D IV ON DAYS 1-4 OF EACH DHOAX CYCLE. 3 CYCLES ON 19.8, 30.9 AND 18.11. ; CYCLICAL
     Route: 042
     Dates: end: 20221031
  2. CYTARABINE [Suspect]
     Active Substance: CYTARABINE
     Indication: Mantle cell lymphoma stage IV
     Dosage: 3 CYCLES OF R-DHAOX FROM AUGUST 19TH, 2022 WITH 2000MG/M2 EACH (ABSOLUTELY 3740-3820 MG) CYTOSAR ON
     Route: 041
     Dates: start: 20220821, end: 20221119
  3. RITUXIMAB [Suspect]
     Active Substance: RITUXIMAB
     Indication: Mantle cell lymphoma stage IV
     Dosage: 375MG/M2 ABSOLUTE 700-700MG IN EACH R-CHOP AND R-DHAOX CYCLE, TOTAL 6 SINCE 07/28/2022: 28.7, 19
     Route: 041
     Dates: start: 20220728, end: 20221118
  4. ELOXATIN [Suspect]
     Active Substance: OXALIPLATIN
     Indication: Mantle cell lymphoma stage IV
     Dosage: 130MG/M2 IN EACH DHOAX CYCLE ON DAY 1, TOTAL 240-250MG, 08/19 240MG, 09/30. 250MG, 11/18 245 M
     Route: 041
     Dates: start: 20220819, end: 20221118
  5. VALACIVIR MEPHA [Concomitant]
     Indication: Product used for unknown indication
     Dosage: 1000 MILLIGRAM DAILY; 1-0-1 (500)
     Route: 048
  6. SULFAMETHOXAZOLE\TRIMETHOPRIM [Concomitant]
     Active Substance: SULFAMETHOXAZOLE\TRIMETHOPRIM
     Indication: Antifungal prophylaxis
     Dosage: 800MG/160MG 1 EACH ON MON, WED, FRI
     Route: 048
  7. PANTOZOL [Concomitant]
     Active Substance: PANTOPRAZOLE SODIUM
     Indication: Product used for unknown indication
     Dosage: 20 MILLIGRAM DAILY; 1-0-0
     Route: 048
  8. MOVICOL [Concomitant]
     Active Substance: POLYETHYLENE GLYCOL 3350\POTASSIUM CHLORIDE\SODIUM BICARBONATE\SODIUM CHLORIDE
     Indication: Product used for unknown indication
     Dosage: IN RESERVE FOR CONSTIPATION MAXIMUM 2/24H ; AS NECESSARY
     Route: 048
  9. MOTILIUM [Concomitant]
     Active Substance: DOMPERIDONE
     Indication: Product used for unknown indication
     Dosage: MAX 3X1/24 IN RESERVE FOR NAUSEA ; AS NECESSARY
     Route: 048
  10. Paspertin [Concomitant]
     Indication: Product used for unknown indication
     Dosage: 2. RESERVE NAUSEA, MAX. 3X30 DROPS PER DAY; AS NECESSARY
     Route: 048
  11. FILGRASTIM [Concomitant]
     Active Substance: FILGRASTIM
     Indication: Product used for unknown indication
     Dosage: IN EACH CYCLE R-CHOP AND DHOAX, DURATION UNTIL BONE MARROW REGENERATION, LAST FROM 11/22/202
     Route: 058
     Dates: start: 20220812

REACTIONS (1)
  - Diverticulitis intestinal perforated [Recovered/Resolved with Sequelae]

NARRATIVE: CASE EVENT DATE: 20221122
